FAERS Safety Report 12567034 (Version 2)
Quarter: 2016Q3

REPORT INFORMATION
  Report Type: Report from Study
  Country: US (occurrence: US)
  Receive Date: 20160718
  Receipt Date: 20160923
  Transmission Date: 20161109
  Serious: Yes (Other)
  Sender: FDA-Public Use
  Company Number: PHEH2016US017692

PATIENT
  Age: 52 Year
  Sex: Female
  Weight: 85.91 kg

DRUGS (9)
  1. NORCO [Concomitant]
     Active Substance: ACETAMINOPHEN\HYDROCODONE BITARTRATE
     Indication: PRODUCT USED FOR UNKNOWN INDICATION
     Dosage: (HYDROCODONE BITARTRATE 10MG, PARACETAMOL 325 MG), 1/2 QD PRN, 1/2 HS
     Route: 065
     Dates: start: 20150813
  2. GILENYA [Suspect]
     Active Substance: FINGOLIMOD HYDROCHLORIDE
     Indication: MULTIPLE SCLEROSIS
     Dosage: 0.5 MG, QD
     Route: 048
     Dates: start: 20150813
  3. CYMBALTA [Concomitant]
     Active Substance: DULOXETINE HYDROCHLORIDE
     Dosage: 60 MG, QD
     Route: 048
  4. CYMBALTA [Concomitant]
     Active Substance: DULOXETINE HYDROCHLORIDE
     Indication: PRODUCT USED FOR UNKNOWN INDICATION
     Dosage: 30 MG, QD FOR 2 WEEKS
     Route: 048
     Dates: start: 20160128
  5. GILENYA [Suspect]
     Active Substance: FINGOLIMOD HYDROCHLORIDE
     Dosage: 0.5 MG, BID
     Route: 048
     Dates: start: 20160714, end: 20160714
  6. GILENYA [Suspect]
     Active Substance: FINGOLIMOD HYDROCHLORIDE
     Dosage: 0.5 UNK, UNK
     Route: 048
  7. IBUPROFEN. [Concomitant]
     Active Substance: IBUPROFEN
     Indication: PRODUCT USED FOR UNKNOWN INDICATION
     Dosage: 200 MG, Q8H (PRN)
     Route: 048
     Dates: start: 20131224
  8. IBUPROFEN. [Concomitant]
     Active Substance: IBUPROFEN
     Dosage: 200 MG, QID
     Route: 048
  9. VITAMIN D3 [Concomitant]
     Active Substance: CHOLECALCIFEROL
     Indication: PRODUCT USED FOR UNKNOWN INDICATION
     Dosage: 5000 U, QD
     Route: 048
     Dates: start: 20131224

REACTIONS (25)
  - Multiple sclerosis relapse [Unknown]
  - Nausea [Unknown]
  - Liver function test increased [Not Recovered/Not Resolved]
  - Lymphocyte count decreased [Unknown]
  - T-lymphocyte count decreased [Unknown]
  - Tremor [Unknown]
  - Hypoaesthesia [Unknown]
  - Ataxia [Unknown]
  - Temperature intolerance [Unknown]
  - Hordeolum [Unknown]
  - Facial pain [Unknown]
  - Neuralgia [Unknown]
  - Accidental overdose [Recovered/Resolved]
  - Respiratory tract infection [Unknown]
  - Abdominal pain upper [Unknown]
  - Weight increased [Unknown]
  - Night sweats [Unknown]
  - Dizziness [Unknown]
  - Headache [Unknown]
  - Neutrophil count increased [Unknown]
  - Cystitis [Unknown]
  - Deafness [Unknown]
  - Visual acuity reduced [Unknown]
  - Blood pressure fluctuation [Unknown]
  - Peripheral swelling [Unknown]

NARRATIVE: CASE EVENT DATE: 20160520
